FAERS Safety Report 25214582 (Version 2)
Quarter: 2025Q2

REPORT INFORMATION
  Report Type: Report from Study
  Country: MY (occurrence: MY)
  Receive Date: 20250418
  Receipt Date: 20250627
  Transmission Date: 20250716
  Serious: Yes (Hospitalization)
  Sender: EXELIXIS
  Company Number: MY-IPSEN Group, Research and Development-2025-08160

PATIENT
  Age: 48 Year
  Sex: Male
  Weight: 82 kg

DRUGS (2)
  1. CABOMETYX [Suspect]
     Active Substance: CABOZANTINIB S-MALATE
     Indication: Renal cell carcinoma
     Dosage: (ONCE DAILY), EVERY 1 DAY
     Route: 048
     Dates: start: 20250103
  2. XARELTO [Concomitant]
     Active Substance: RIVAROXABAN

REACTIONS (6)
  - Peripheral swelling [Recovering/Resolving]
  - Post procedural haemorrhage [Unknown]
  - Abdominal wall haemorrhage [Unknown]
  - Dyspnoea [Unknown]
  - Pulmonary embolism [Unknown]
  - Hypertension [Unknown]

NARRATIVE: CASE EVENT DATE: 20250401
